FAERS Safety Report 6448080-6 (Version None)
Quarter: 2009Q4

REPORT INFORMATION
  Report Type: 
  Country: None (occurrence: None)
  Receive Date: 20091120
  Receipt Date: 20091112
  Transmission Date: 20100525
  Serious: Yes (Other)
  Sender: FDA-Public Use
  Company Number: US-ASTRAZENECA-2009UW13545

PATIENT
  Age: 57 Year
  Sex: Female
  Weight: 88.5 kg

DRUGS (13)
  1. SEROQUEL [Suspect]
     Indication: BIPOLAR DISORDER
     Route: 048
     Dates: start: 20020117
  2. SEROQUEL [Suspect]
     Indication: ANXIETY
     Route: 048
     Dates: start: 20020117
  3. SEROQUEL [Suspect]
     Route: 048
     Dates: start: 20021001
  4. SEROQUEL [Suspect]
     Route: 048
     Dates: start: 20021001
  5. SEROQUEL [Suspect]
     Route: 048
     Dates: start: 20020101
  6. SEROQUEL [Suspect]
     Route: 048
     Dates: start: 20020101
  7. PREVACID [Concomitant]
     Indication: GASTRITIS
     Route: 048
     Dates: start: 20060504
  8. KLOR-CON [Concomitant]
     Indication: MINERAL SUPPLEMENTATION
     Route: 048
     Dates: start: 20060504
  9. FUROSEMIDE [Concomitant]
     Indication: POLYURIA
     Route: 048
     Dates: start: 20060504
  10. DETROL [Concomitant]
     Indication: MICTURITION URGENCY
     Route: 048
     Dates: start: 20060504
  11. DIOVAN [Concomitant]
     Indication: BLOOD PRESSURE
  12. ZELNORM [Concomitant]
  13. DONNATEL [Concomitant]
     Indication: ABDOMINAL PAIN

REACTIONS (10)
  - CARDIAC DISORDER [None]
  - CELLULITIS [None]
  - CEREBRAL PALSY [None]
  - EYE DISORDER [None]
  - HYPERTENSION [None]
  - MULTIPLE SCLEROSIS [None]
  - OBESITY [None]
  - TYPE 2 DIABETES MELLITUS [None]
  - VASCULAR INSUFFICIENCY [None]
  - WEIGHT INCREASED [None]
